FAERS Safety Report 17943100 (Version 1)
Quarter: 2020Q2

REPORT INFORMATION
  Report Type: Spontaneous
  Country: DE (occurrence: DE)
  Receive Date: 20200625
  Receipt Date: 20200625
  Transmission Date: 20200714
  Serious: Yes (Other)
  Sender: FDA-Public Use
  Company Number: NVSC2020DE090704

PATIENT
  Age: 33 Year
  Sex: Female

DRUGS (3)
  1. INFLIXIMAB [Suspect]
     Active Substance: INFLIXIMAB
     Indication: GRANULOMATOSIS WITH POLYANGIITIS
     Dosage: 5 MG/KG, QMO
     Route: 065
  2. METHOTREXATE. [Suspect]
     Active Substance: METHOTREXATE
     Indication: GRANULOMATOSIS WITH POLYANGIITIS
     Dosage: 20 MG, QW
     Route: 065
  3. PREDNISOLONE. [Suspect]
     Active Substance: PREDNISOLONE
     Indication: GRANULOMATOSIS WITH POLYANGIITIS
     Dosage: 30 MG, QD
     Route: 065

REACTIONS (4)
  - Treatment failure [Unknown]
  - Product use in unapproved indication [Unknown]
  - Scleritis [Unknown]
  - Inflammation [Unknown]
